FAERS Safety Report 18822845 (Version 1)
Quarter: 2021Q1

REPORT INFORMATION
  Report Type: Report from Study
  Country: FR (occurrence: FR)
  Receive Date: 20210202
  Receipt Date: 20210202
  Transmission Date: 20210419
  Serious: Yes (Life-Threatening, Hospitalization, Other)
  Sender: FDA-Public Use
  Company Number: FR-GLAXOSMITHKLINE-FR2020GSK082902

PATIENT
  Age: 64 Year
  Sex: Male
  Weight: 67 kg

DRUGS (6)
  1. VALACYCLOVIR [Concomitant]
     Active Substance: VALACYCLOVIR HYDROCHLORIDE
     Indication: PROPHYLAXIS
     Dosage: 500 MG, TID PER ORAL
     Route: 048
     Dates: start: 20140101
  2. ALLOPURINOL. [Concomitant]
     Active Substance: ALLOPURINOL
     Indication: PROPHYLAXIS
     Dosage: 500 MG PER ORAL
     Route: 048
     Dates: start: 20200404
  3. BACTRIM [Concomitant]
     Active Substance: SULFAMETHOXAZOLE\TRIMETHOPRIM
     Indication: PROPHYLAXIS
     Dosage: 80/160 MG PER ORAL
     Route: 048
     Dates: start: 20140101
  4. CORTANCYL [Concomitant]
     Active Substance: PREDNISONE
     Dosage: 40 MG
     Route: 042
  5. BELANTAMAB MAFODOTIN. [Suspect]
     Active Substance: BELANTAMAB MAFODOTIN
     Indication: PLASMA CELL MYELOMA
     Dosage: 2.5 MG/KG D1?D21 ((I.E. 8.6905 MG (182.5 MG, 1 IN 21 HOUR(S))))
     Route: 042
     Dates: start: 20200414, end: 20200504
  6. POLARMIN [Concomitant]
     Dosage: 5 MG
     Route: 042

REACTIONS (2)
  - Cardiotoxicity [Recovering/Resolving]
  - Left ventricular dysfunction [Recovering/Resolving]

NARRATIVE: CASE EVENT DATE: 20200504
